FAERS Safety Report 13689333 (Version 1)
Quarter: 2017Q2

REPORT INFORMATION
  Report Type: Spontaneous
  Country: US (occurrence: US)
  Receive Date: 20170626
  Receipt Date: 20170626
  Transmission Date: 20170830
  Serious: Yes (Other)
  Sender: FDA-Public Use
  Company Number: US-GLAXOSMITHKLINE-US2017097216

PATIENT
  Age: 52 Year
  Sex: Female

DRUGS (1)
  1. LAMICTAL XR [Suspect]
     Active Substance: LAMOTRIGINE
     Indication: BIPOLAR DISORDER
     Dosage: 600 MG, 1D
     Dates: start: 2014

REACTIONS (4)
  - Meniscus operation [Recovering/Resolving]
  - Product use in unapproved indication [Unknown]
  - Fall [Recovering/Resolving]
  - Meniscus injury [Unknown]

NARRATIVE: CASE EVENT DATE: 201704
